FAERS Safety Report 8450913-9 (Version None)
Quarter: 2012Q2

REPORT INFORMATION
  Report Type: 
  Country: None (occurrence: None)
  Receive Date: 20120620
  Receipt Date: 20120607
  Transmission Date: 20120825
  Serious: No
  Sender: FDA-Public Use
  Company Number: US-ASTRAZENECA-2010SE61423

PATIENT
  Age: 52 Year
  Sex: Female

DRUGS (11)
  1. SEROQUEL [Suspect]
     Route: 048
     Dates: start: 20100401
  2. LISINOPRIL [Suspect]
     Indication: HYPERTENSION
     Route: 048
  3. CELEXA [Concomitant]
  4. BUPROPION HCL [Concomitant]
  5. LEVOTHYROXINE SODIUM [Concomitant]
     Indication: HYPOTHYROIDISM
  6. SEROQUEL [Suspect]
     Route: 048
  7. DIAZEPAM [Concomitant]
     Indication: PANIC ATTACK
  8. DILAUDID [Concomitant]
  9. SEROQUEL [Suspect]
     Indication: BIPOLAR DISORDER
     Dosage: 100-200 MG
     Route: 048
     Dates: start: 20080101
  10. LORAZEPAM [Concomitant]
     Indication: PANIC ATTACK
  11. SEROQUEL [Suspect]
     Route: 048

REACTIONS (14)
  - MIGRAINE [None]
  - NAUSEA [None]
  - HEAD DISCOMFORT [None]
  - DIZZINESS [None]
  - CONDITION AGGRAVATED [None]
  - MALAISE [None]
  - VOMITING [None]
  - ABDOMINAL DISCOMFORT [None]
  - PANIC ATTACK [None]
  - ABDOMINAL PAIN UPPER [None]
  - INSOMNIA [None]
  - INTENTIONAL DRUG MISUSE [None]
  - EMOTIONAL DISTRESS [None]
  - HYPERSOMNIA [None]
